FAERS Safety Report 17425780 (Version 1)
Quarter: 2020Q1

REPORT INFORMATION
  Report Type: Report from Study
  Country: CN (occurrence: CN)
  Receive Date: 20200218
  Receipt Date: 20200218
  Transmission Date: 20200409
  Serious: Yes (Other)
  Sender: FDA-Public Use
  Company Number: CN-ROCHE-2550064

PATIENT

DRUGS (7)
  1. EPIRUBICIN [Suspect]
     Active Substance: EPIRUBICIN
     Indication: B-CELL LYMPHOMA
     Dosage: DAY 1 TO DAY 4. SHOULD BE USED FOR 96 CONSECUTIVE HOURS
     Route: 041
  2. GRANULOCYTE COLONY STIMULATING FACTOR [Concomitant]
     Active Substance: GRANULOCYTE COLONY-STIMULATING FACTOR NOS
     Dosage: ON DAY 6
     Route: 058
  3. VINDESINE [Suspect]
     Active Substance: VINDESINE
     Indication: B-CELL LYMPHOMA
     Dosage: SHOULD BE USED FOR 96 CONSECUTIVE HOURS
     Route: 041
  4. CYCLOPHOSPHAMIDE. [Suspect]
     Active Substance: CYCLOPHOSPHAMIDE
     Indication: B-CELL LYMPHOMA
     Route: 065
  5. PREDNISONE. [Suspect]
     Active Substance: PREDNISONE
     Indication: B-CELL LYMPHOMA
     Route: 048
  6. ETOPOSIDE. [Suspect]
     Active Substance: ETOPOSIDE
     Indication: B-CELL LYMPHOMA
     Dosage: DAY 1 TO DAY 4. SHOULD BE USED FOR 96 CONSECUTIVE HOURS
     Route: 041
  7. RITUXIMAB. [Suspect]
     Active Substance: RITUXIMAB
     Indication: B-CELL LYMPHOMA
     Route: 065

REACTIONS (8)
  - White blood cell count decreased [Unknown]
  - Pulmonary toxicity [Unknown]
  - Vomiting [Unknown]
  - Neutrophil count decreased [Unknown]
  - Cardiotoxicity [Unknown]
  - Anaemia [Unknown]
  - Platelet count decreased [Unknown]
  - Nausea [Unknown]
